FAERS Safety Report 23684175 (Version 3)
Quarter: 2025Q2

REPORT INFORMATION
  Report Type: Spontaneous
  Country: JP (occurrence: JP)
  Receive Date: 20240328
  Receipt Date: 20250501
  Transmission Date: 20250717
  Serious: Yes (Hospitalization, Other)
  Sender: BRISTOL-MYERS SQUIBB COMPANY
  Company Number: JP-ONO-2024JP006343

PATIENT
  Age: 71 Year
  Sex: Female

DRUGS (3)
  1. OPDIVO [Suspect]
     Active Substance: NIVOLUMAB
     Indication: Gastric cancer
     Dosage: 360 MG, Q3W
     Route: 041
     Dates: start: 20231016, end: 20240226
  2. GIMERACIL\OTERACIL\TEGAFUR [Concomitant]
     Active Substance: GIMERACIL\OTERACIL POTASSIUM\TEGAFUR
     Indication: Gastric cancer
     Dates: start: 20231016, end: 20240226
  3. OXALIPLATIN [Concomitant]
     Active Substance: OXALIPLATIN
     Indication: Gastric cancer
     Dates: start: 20231016, end: 20240226

REACTIONS (7)
  - Depressed level of consciousness [Unknown]
  - Epilepsy [Unknown]
  - Immune-mediated encephalitis [Not Recovered/Not Resolved]
  - Hypothalamo-pituitary disorder [Unknown]
  - Road traffic accident [Unknown]
  - Dysstasia [Unknown]
  - Dysphonia [Unknown]

NARRATIVE: CASE EVENT DATE: 20240317
